FAERS Safety Report 5195321-1 (Version None)
Quarter: 2006Q4

REPORT INFORMATION
  Report Type: 
  Country: None (occurrence: None)
  Receive Date: 20061229
  Receipt Date: 20061218
  Transmission Date: 20070319
  Serious: Yes (Hospitalization)
  Sender: FDA-Public Use
  Company Number: JP-PFIZER INC-2006154727

PATIENT
  Age: 73 Year
  Sex: Female

DRUGS (10)
  1. DIFLUCAN [Suspect]
     Indication: FUNGAEMIA
     Dosage: DAILY DOSE:100MG
     Route: 048
     Dates: start: 20061213, end: 20061215
  2. PRODIF [Suspect]
     Indication: FUNGAEMIA
     Route: 042
     Dates: start: 20061210, end: 20061212
  3. WARFARIN SODIUM [Concomitant]
     Route: 042
  4. LIVALO [Concomitant]
     Route: 048
  5. DIAMOX [Concomitant]
     Route: 048
  6. CARDENALIN [Concomitant]
     Route: 048
  7. ALLOPURINOL [Concomitant]
     Route: 048
  8. DIART [Concomitant]
     Route: 048
  9. ASPIRIN [Concomitant]
     Route: 048
  10. ROCALTROL [Concomitant]
     Route: 048

REACTIONS (4)
  - ACTIVATED PARTIAL THROMBOPLASTIN TIME PROLONGED [None]
  - EPISTAXIS [None]
  - HAEMORRHAGIC DIATHESIS [None]
  - PROTHROMBIN TIME PROLONGED [None]
